FAERS Safety Report 6336667-0 (Version None)
Quarter: 2009Q3

REPORT INFORMATION
  Report Type: 
  Country: None (occurrence: None)
  Receive Date: 20090901
  Receipt Date: 20090820
  Transmission Date: 20100115
  Serious: Yes (Hospitalization)
  Sender: FDA-Public Use
  Company Number: FR-PFIZER INC-2009257257

PATIENT
  Age: 88 Year

DRUGS (10)
  1. TRIFLUCAN [Suspect]
     Indication: CANDIDIASIS
     Dosage: 100 MG, 1X/DAY
     Route: 048
     Dates: start: 20090630, end: 20090705
  2. PREVISCAN [Interacting]
     Dosage: 20 MG, 1X/DAY
     Route: 048
     Dates: start: 20060101, end: 20090705
  3. TAHOR [Concomitant]
  4. KARDEGIC [Concomitant]
  5. GARDENAL ^AVENTIS^ [Concomitant]
  6. COVERSYL [Concomitant]
  7. CARDENSIEL [Concomitant]
  8. NOVONORM [Concomitant]
  9. LEVOTHYROXINE SODIUM [Concomitant]
  10. INEXIUM [Concomitant]

REACTIONS (3)
  - HAEMATURIA [None]
  - INTERNATIONAL NORMALISED RATIO INCREASED [None]
  - POTENTIATING DRUG INTERACTION [None]
